FAERS Safety Report 13611050 (Version 1)
Quarter: 2017Q2

REPORT INFORMATION
  Report Type: Spontaneous
  Country: US (occurrence: US)
  Receive Date: 20170603
  Receipt Date: 20170603
  Transmission Date: 20170830
  Serious: Yes (Disabling)
  Sender: FDA-Public Use
  Company Number: None

PATIENT
  Age: 37 Year
  Sex: Male
  Weight: 60.75 kg

DRUGS (1)
  1. CIPROFLOXACIN. [Suspect]
     Active Substance: CIPROFLOXACIN
     Indication: PROSTATE INFECTION
     Route: 048
     Dates: start: 20170406, end: 20170408

REACTIONS (3)
  - Tendonitis [None]
  - Neuropathy peripheral [None]
  - Abasia [None]

NARRATIVE: CASE EVENT DATE: 20170406
